FAERS Safety Report 8410885-X (Version None)
Quarter: 2012Q2

REPORT INFORMATION
  Report Type: 
  Country: None (occurrence: None)
  Receive Date: 20120605
  Receipt Date: 20120530
  Transmission Date: 20120825
  Serious: Yes (Other)
  Sender: FDA-Public Use
  Company Number: PHHY2012PL046873

PATIENT
  Sex: Male

DRUGS (9)
  1. DIGITALIS [Suspect]
     Dosage: MATERNAL DOSE OF 0.1 MG/DAY
     Route: 064
  2. ENALAPRIL MALEATE [Suspect]
     Dosage: 2.5 MG, QD
  3. METOPROLOL TARTRATE [Suspect]
     Dosage: MATERNAL DOSE OF 50-75 MG/DAY
     Route: 064
  4. BETAMETHASONE [Suspect]
     Route: 064
  5. ENALAPRIL MALEATE [Suspect]
     Dosage: MATERNAL DOSE OF 5 MG, BID
     Route: 064
  6. ISOSORBIDE MONONITRATE [Suspect]
     Dosage: MATERNAL DOSE OF 20 MG, BID
     Route: 064
  7. SPIRONOLACTONE [Suspect]
     Dosage: MATERNAL DOSE OF 12.5 MG/DAY
     Route: 064
  8. FUROSEMIDE [Suspect]
     Dosage: MATERNAL DOSE OF 40 MG
     Route: 064
  9. DIHYDRALAZINE [Suspect]
     Dosage: MATERNAL DOSE OF 25 MG, TID
     Route: 064

REACTIONS (3)
  - HAEMORRHAGE INTRACRANIAL [None]
  - PREMATURE BABY [None]
  - FOETAL EXPOSURE DURING PREGNANCY [None]
